FAERS Safety Report 6617812-6 (Version None)
Quarter: 2010Q1

REPORT INFORMATION
  Report Type: 
  Country: None (occurrence: None)
  Receive Date: 20100302
  Receipt Date: 20100209
  Transmission Date: 20100710
  Serious: Yes (Hospitalization, Other)
  Sender: FDA-Public Use
  Company Number: JPI-P-009710

PATIENT
  Age: 18 Year
  Sex: Male

DRUGS (4)
  1. SODIUM OXYBATE [Suspect]
     Indication: CATAPLEXY
     Dosage: 4.5 GM (2.25 GM, 2 IN 1 D); 6 GM (3 GM, 2 IN 1 D)
     Dates: start: 20080410, end: 20080410
  2. SODIUM OXYBATE [Suspect]
     Indication: CATAPLEXY
     Dosage: 4.5 GM (2.25 GM, 2 IN 1 D); 6 GM (3 GM, 2 IN 1 D)
     Dates: start: 20080411
  3. MODAFINIL [Suspect]
     Indication: CATAPLEXY
     Dosage: 200 MG (100 MG, 2 IN 1 D)
     Dates: start: 20080228
  4. WHISKY [Suspect]
     Indication: SUICIDE ATTEMPT
     Dosage: (4 DECILITERS)

REACTIONS (5)
  - DEPRESSION [None]
  - DEREALISATION [None]
  - LOSS OF CONSCIOUSNESS [None]
  - NEGATIVE THOUGHTS [None]
  - SUICIDE ATTEMPT [None]
